FAERS Safety Report 5349427-4 (Version None)
Quarter: 2007Q2

REPORT INFORMATION
  Report Type: 
  Country: None (occurrence: None)
  Receive Date: 20070607
  Receipt Date: 20070601
  Transmission Date: 20071010
  Serious: Yes (Other)
  Sender: FDA-Public Use
  Company Number: US-ROCHE-500332

PATIENT
  Age: 65 Year
  Sex: Male

DRUGS (7)
  1. NAPROXEN [Suspect]
     Indication: DRUG USE FOR UNKNOWN INDICATION
     Route: 065
  2. SIMVASTATIN [Concomitant]
  3. LISINOPRIL [Concomitant]
  4. FEXOFENADINE [Concomitant]
  5. ACETAMINOPHEN [Concomitant]
  6. ASPIRIN [Concomitant]
  7. CALCIUM CHLORIDE [Concomitant]

REACTIONS (2)
  - AMYLOIDOSIS [None]
  - PSEUDOPORPHYRIA [None]
